FAERS Safety Report 15921372 (Version 2)
Quarter: 2019Q1

REPORT INFORMATION
  Report Type: Spontaneous
  Country: US (occurrence: US)
  Receive Date: 20190205
  Receipt Date: 20190219
  Transmission Date: 20190417
  Serious: No
  Sender: FDA-Public Use
  Company Number: US-ALLERGAN-1681668US

PATIENT
  Age: 37 Year
  Sex: Male
  Weight: 86.17 kg

DRUGS (1)
  1. BOTOX [Suspect]
     Active Substance: ONABOTULINUMTOXINA
     Indication: HYPERTONIC BLADDER
     Dosage: 100 UNITS, SINGLE
     Route: 043
     Dates: start: 20161219, end: 20161219

REACTIONS (1)
  - Occupational exposure to product [Recovered/Resolved]

NARRATIVE: CASE EVENT DATE: 20161219
